FAERS Safety Report 14762603 (Version 1)
Quarter: 2018Q2

REPORT INFORMATION
  Report Type: Spontaneous
  Country: US (occurrence: US)
  Receive Date: 20180409
  Receipt Date: 20180409
  Transmission Date: 20180711
  Serious: Yes (Hospitalization)
  Sender: FDA-Public Use
  Company Number: None

PATIENT
  Age: 45 Year
  Sex: Male
  Weight: 68.04 kg

DRUGS (1)
  1. EYLEA [Suspect]
     Active Substance: AFLIBERCEPT

REACTIONS (6)
  - Blood creatine phosphokinase abnormal [None]
  - Limb injury [None]
  - Osteopenia [None]
  - Glycosylated haemoglobin increased [None]
  - Bone erosion [None]
  - Blood glucose increased [None]

NARRATIVE: CASE EVENT DATE: 20180203
